FAERS Safety Report 14548416 (Version 1)
Quarter: 2018Q1

REPORT INFORMATION
  Report Type: Spontaneous
  Country: US (occurrence: US)
  Receive Date: 20180219
  Receipt Date: 20180219
  Transmission Date: 20180509
  Serious: No
  Sender: FDA-Public Use
  Company Number: US-ROCHE-1909836

PATIENT
  Age: 39 Year
  Sex: Female

DRUGS (1)
  1. XOLAIR [Suspect]
     Active Substance: OMALIZUMAB
     Indication: PRODUCT USED FOR UNKNOWN INDICATION
     Route: 058
     Dates: start: 20170120, end: 20170221

REACTIONS (4)
  - Burning sensation [Unknown]
  - Pruritus [Unknown]
  - Hot flush [Unknown]
  - Swelling [Unknown]

NARRATIVE: CASE EVENT DATE: 20170221
